FAERS Safety Report 4596940-3 (Version None)
Quarter: 2005Q1

REPORT INFORMATION
  Report Type: 
  Country: None (occurrence: None)
  Receive Date: 20050228
  Receipt Date: 20050107
  Transmission Date: 20050727
  Serious: Yes (Other)
  Sender: FDA-Public Use
  Company Number: 2004116313

PATIENT
  Age: 70 Year
  Sex: Female

DRUGS (1)
  1. BEXTRA [Suspect]
     Indication: PAIN
     Dosage: 20 MG (20 MG, 1 IN 1 D), ORAL
     Route: 048
     Dates: start: 20040801, end: 20040101

REACTIONS (5)
  - ANXIETY [None]
  - CHEST PAIN [None]
  - FEELING ABNORMAL [None]
  - HEART RATE INCREASED [None]
  - PALPITATIONS [None]
